FAERS Safety Report 17210092 (Version 2)
Quarter: 2020Q3

REPORT INFORMATION
  Report Type: Report from Study
  Country: CA (occurrence: CA)
  Receive Date: 20191227
  Receipt Date: 20200721
  Transmission Date: 20201102
  Serious: Yes (Hospitalization)
  Sender: FDA-Public Use
  Company Number: CA-JNJFOC-20190343130

PATIENT
  Age: 50 Year
  Sex: Male
  Weight: 100 kg

DRUGS (3)
  1. REMICADE [Suspect]
     Active Substance: INFLIXIMAB
     Route: 042
  2. REMICADE [Suspect]
     Active Substance: INFLIXIMAB
     Indication: CROHN^S DISEASE
     Dosage: STRENGTH = 100 MG
     Route: 042
     Dates: start: 201003, end: 20190913
  3. REMICADE [Suspect]
     Active Substance: INFLIXIMAB
     Route: 042
     Dates: start: 201003

REACTIONS (6)
  - Legionella infection [Recovered/Resolved]
  - Back pain [Recovered/Resolved]
  - Crohn^s disease [Recovered/Resolved]
  - Arthralgia [Unknown]
  - Weight decreased [Recovered/Resolved]
  - Therapeutic product effect decreased [Unknown]

NARRATIVE: CASE EVENT DATE: 20190321
